FAERS Safety Report 16341337 (Version 1)
Quarter: 2019Q2

REPORT INFORMATION
  Report Type: Spontaneous
  Country: FR (occurrence: FR)
  Receive Date: 20190522
  Receipt Date: 20190522
  Transmission Date: 20190711
  Serious: Yes (Hospitalization)
  Sender: FDA-Public Use
  Company Number: PHHY2019FR115032

PATIENT
  Age: 89 Year
  Sex: Female

DRUGS (5)
  1. LERCAN [Suspect]
     Active Substance: LERCANIDIPINE
     Indication: HYPERTENSION
     Dosage: 20 MG, QD
     Route: 048
  2. FUROSEMIDE. [Suspect]
     Active Substance: FUROSEMIDE
     Indication: HYPERTENSION
     Dosage: UNK
     Route: 048
  3. LISINOPRIL ANHYDROUS [Suspect]
     Active Substance: LISINOPRIL
     Indication: HYPERTENSION
     Route: 048
  4. PRAVASTATIN SODIUM. [Suspect]
     Active Substance: PRAVASTATIN SODIUM
     Indication: HYPERCHOLESTEROLAEMIA
     Dosage: UNK
     Route: 048
  5. MEDIATENSYL [Suspect]
     Active Substance: URAPIDIL
     Indication: HYPERTENSION
     Dosage: 60 MG, QD
     Route: 048

REACTIONS (4)
  - Anaemia [Not Recovered/Not Resolved]
  - Thrombocytopenia [Not Recovered/Not Resolved]
  - Pancytopenia [Not Recovered/Not Resolved]
  - Neutropenia [Not Recovered/Not Resolved]

NARRATIVE: CASE EVENT DATE: 201609
